FAERS Safety Report 4748517-4 (Version None)
Quarter: 2005Q3

REPORT INFORMATION
  Report Type: 
  Country: None (occurrence: None)
  Receive Date: 20050818
  Receipt Date: 20050818
  Transmission Date: 20060218
  Serious: Yes (Other)
  Sender: FDA-Public Use
  Company Number: None

PATIENT
  Age: 40 Year
  Sex: Female
  Weight: 88.4514 kg

DRUGS (4)
  1. ZOLOFT [Suspect]
     Indication: ANXIETY
     Dosage: 100 MG   DAILY   ORAL
     Route: 048
     Dates: start: 20010714, end: 20020118
  2. ZOLOFT [Suspect]
     Indication: DEPRESSION
     Dosage: 100 MG   DAILY   ORAL
     Route: 048
     Dates: start: 20010714, end: 20020118
  3. ZOLOFT [Suspect]
     Indication: ANXIETY
     Dosage: 100 MG DAILY ORAL
     Route: 048
     Dates: start: 20050510, end: 20050817
  4. ZOLOFT [Suspect]
     Indication: DEPRESSION
     Dosage: 100 MG DAILY ORAL
     Route: 048
     Dates: start: 20050510, end: 20050817

REACTIONS (13)
  - CRYING [None]
  - DEPRESSION [None]
  - DISORIENTATION [None]
  - DIZZINESS [None]
  - DRUG DOSE OMISSION [None]
  - DRUG EXPOSURE DURING PREGNANCY [None]
  - DRUG WITHDRAWAL SYNDROME [None]
  - FEELING ABNORMAL [None]
  - HALLUCINATION, AUDITORY [None]
  - INSOMNIA [None]
  - IRRITABILITY [None]
  - MENTAL DISORDER [None]
  - TINNITUS [None]
